FAERS Safety Report 5251956-9 (Version None)
Quarter: 2007Q1

REPORT INFORMATION
  Report Type: 
  Country: None (occurrence: None)
  Receive Date: 20070223
  Receipt Date: 20070212
  Transmission Date: 20070707
  Serious: Yes (Hospitalization)
  Sender: FDA-Public Use
  Company Number: 2007-00358

PATIENT
  Age: 71 Year
  Sex: Male
  Weight: 83 kg

DRUGS (1)
  1. VELCADE [Suspect]
     Indication: MYELODYSPLASTIC SYNDROME
     Dates: start: 20061219, end: 20070130

REACTIONS (4)
  - ABSCESS [None]
  - FEBRILE NEUTROPENIA [None]
  - GROIN PAIN [None]
  - SWELLING [None]
